FAERS Safety Report 16698623 (Version 1)
Quarter: 2019Q3

REPORT INFORMATION
  Report Type: Spontaneous
  Country: MX (occurrence: MX)
  Receive Date: 20190813
  Receipt Date: 20190813
  Transmission Date: 20191004
  Serious: Yes (Other)
  Sender: FDA-Public Use
  Company Number: MX-ASTRAZENECA-2019SF12897

PATIENT
  Sex: Male
  Weight: 54 kg

DRUGS (2)
  1. IRESSA [Suspect]
     Active Substance: GEFITINIB
     Indication: LUNG NEOPLASM MALIGNANT
     Dosage: 250MG FOR 6 CYCLES
     Route: 048
  2. OSIMERTINIB MESILATE [Concomitant]
     Active Substance: OSIMERTINIB
     Dosage: 80 MG, 5 CYCLES
     Route: 048

REACTIONS (2)
  - Drug interaction [Unknown]
  - Therapy partial responder [Unknown]
